FAERS Safety Report 16260289 (Version 2)
Quarter: 2019Q3

REPORT INFORMATION
  Report Type: Spontaneous
  Country: US (occurrence: US)
  Receive Date: 20190501
  Receipt Date: 20190903
  Transmission Date: 20191004
  Serious: No
  Sender: FDA-Public Use
  Company Number: US-PFIZER INC-2019184632

PATIENT
  Age: 63 Year
  Sex: Male

DRUGS (1)
  1. SUTENT [Suspect]
     Active Substance: SUNITINIB MALATE
     Indication: RENAL CANCER
     Dosage: 37.5 MG, UNK

REACTIONS (7)
  - Skin lesion [Unknown]
  - Nausea [Unknown]
  - Diarrhoea [Unknown]
  - Weight increased [Unknown]
  - Rash [Unknown]
  - Swelling face [Unknown]
  - Neoplasm progression [Unknown]
